FAERS Safety Report 10672656 (Version 1)
Quarter: 2014Q4

REPORT INFORMATION
  Report Type: Spontaneous
  Country: DE (occurrence: DE)
  Receive Date: 20141223
  Receipt Date: 20141223
  Transmission Date: 20150529
  Serious: Yes (Other)
  Sender: FDA-Public Use
  Company Number: DE-TEVA-529494GER

PATIENT
  Age: 53 Year
  Sex: Male
  Weight: 95 kg

DRUGS (7)
  1. PROPRANOLOL [Suspect]
     Active Substance: PROPRANOLOL\PROPRANOLOL HYDROCHLORIDE
     Dosage: 80 MILLIGRAM DAILY;
     Route: 048
     Dates: start: 20131222, end: 20140113
  2. IBUPROFEN. [Concomitant]
     Active Substance: IBUPROFEN
     Indication: ANALGESIC THERAPY
     Dosage: 1200 MILLIGRAM DAILY;
     Route: 048
     Dates: start: 20131230, end: 20140227
  3. OXANDROLONE. [Suspect]
     Active Substance: OXANDROLONE
     Dosage: 20 MILLIGRAM DAILY;
     Route: 048
     Dates: start: 20131222, end: 20140113
  4. OMEPRAZOL [Concomitant]
     Active Substance: OMEPRAZOLE
     Indication: GASTRITIS PROPHYLAXIS
     Dosage: 20 MILLIGRAM DAILY;
     Route: 048
     Dates: start: 20131219, end: 20140227
  5. TARGIN 10/5 [Concomitant]
     Active Substance: NALOXONE HYDROCHLORIDE\OXYCODONE HYDROCHLORIDE
     Indication: ANALGESIC THERAPY
     Dosage: 2 DOSAGE FORMS DAILY;
     Route: 048
     Dates: start: 20131230, end: 20140227
  6. PROPRANOLOL [Suspect]
     Active Substance: PROPRANOLOL\PROPRANOLOL HYDROCHLORIDE
     Dosage: 80 MILLIGRAM DAILY;
     Route: 048
     Dates: start: 20131222, end: 20140113
  7. CLONIDIN [Concomitant]
     Indication: HYPERTENSION
     Dosage: 150 MICROGRAM DAILY;
     Route: 048
     Dates: start: 20140102, end: 20140227

REACTIONS (5)
  - Alanine aminotransferase increased [Recovered/Resolved]
  - Blood bilirubin increased [Recovered/Resolved]
  - Blood alkaline phosphatase increased [None]
  - Aspartate aminotransferase increased [Recovered/Resolved]
  - Gamma-glutamyltransferase increased [Recovered/Resolved]

NARRATIVE: CASE EVENT DATE: 20140109
